FAERS Safety Report 23193482 (Version 7)
Quarter: 2024Q2

REPORT INFORMATION
  Report Type: Report from Study
  Country: US (occurrence: US)
  Receive Date: 20231116
  Receipt Date: 20240621
  Transmission Date: 20240716
  Serious: Yes (Other)
  Sender: FDA-Public Use
  Company Number: US-TAIHOP-2023-009542

PATIENT
  Age: 74 Year
  Sex: Female

DRUGS (6)
  1. LONSURF [Suspect]
     Active Substance: TIPIRACIL HYDROCHLORIDE\TRIFLURIDINE
     Indication: Colon cancer
     Dosage: CYCLE 1; FORM STRENGTH: 15 MG AND 20 MG
     Route: 048
     Dates: start: 20231028
  2. BEVACIZUMAB [Suspect]
     Active Substance: BEVACIZUMAB
     Indication: Product used for unknown indication
     Dosage: DOSE, FREQUENCY, FORM STRENGTH WERE UNKNOWN
     Route: 050
  3. DOXYCYCLINE [Concomitant]
     Active Substance: DOXYCYCLINE\DOXYCYCLINE HYCLATE
     Indication: Product used for unknown indication
  4. ELIQUIS [Concomitant]
     Active Substance: APIXABAN
     Indication: Product used for unknown indication
  5. GEMTESA [Concomitant]
     Active Substance: VIBEGRON
     Indication: Product used for unknown indication
  6. KLOR-CON M2O [Concomitant]
     Indication: Product used for unknown indication
     Dosage: ER

REACTIONS (15)
  - Haemoptysis [Recovered/Resolved]
  - Haemorrhage [Unknown]
  - White blood cell count decreased [Unknown]
  - Disease progression [Unknown]
  - Pollakiuria [Unknown]
  - Back pain [Unknown]
  - Cough [Unknown]
  - Hypersomnia [Unknown]
  - Lip ulceration [Unknown]
  - Asthenia [Unknown]
  - Decreased appetite [Unknown]
  - Product dose omission in error [Unknown]
  - Constipation [Not Recovered/Not Resolved]
  - Fatigue [Not Recovered/Not Resolved]
  - Nail bed bleeding [Not Recovered/Not Resolved]

NARRATIVE: CASE EVENT DATE: 20231101
